FAERS Safety Report 7506110-4 (Version None)
Quarter: 2011Q2

REPORT INFORMATION
  Report Type: 
  Country: None (occurrence: None)
  Receive Date: 20110526
  Receipt Date: 20110518
  Transmission Date: 20111010
  Serious: Yes (Death)
  Sender: FDA-Public Use
  Company Number: DK-PFIZER INC-2011109963

PATIENT
  Age: 58 Year

DRUGS (7)
  1. AMLODIPINE BESYLATE [Suspect]
  2. KETOBEMIDONE [Suspect]
  3. CITALOPRAM HYDROBROMIDE [Suspect]
  4. MIANSERIN [Suspect]
  5. ALPRAZOLAM [Suspect]
  6. DIAZEPAM [Suspect]
  7. FLUNITRAZEPAM [Suspect]

REACTIONS (1)
  - DEATH [None]
